FAERS Safety Report 7944430-X (Version None)
Quarter: 2011Q4

REPORT INFORMATION
  Report Type: 
  Country: None (occurrence: None)
  Receive Date: 20111129
  Receipt Date: 20111121
  Transmission Date: 20120403
  Serious: No
  Sender: FDA-Public Use
  Company Number: US-BIOGENIDEC-2011BI044719

PATIENT
  Sex: Male

DRUGS (1)
  1. AVONEX [Suspect]
     Indication: MULTIPLE SCLEROSIS
     Route: 030
     Dates: start: 20020515

REACTIONS (6)
  - SKIN WARM [None]
  - DERMATITIS [None]
  - NERVE INJURY [None]
  - MYALGIA [None]
  - INJECTION SITE ERYTHEMA [None]
  - PAIN [None]
